FAERS Safety Report 5011636-1 (Version None)
Quarter: 2006Q2

REPORT INFORMATION
  Report Type: 
  Country: None (occurrence: None)
  Receive Date: 20060526
  Receipt Date: 20060515
  Transmission Date: 20061013
  Serious: Yes (Death)
  Sender: FDA-Public Use
  Company Number: US-JNJFOC-20060504537

PATIENT

DRUGS (5)
  1. REMICADE [Suspect]
  2. REMICADE [Suspect]
     Indication: CROHN'S DISEASE
  3. ENTOCORT [Concomitant]
  4. ASACOL [Concomitant]
  5. 6-MP [Concomitant]
     Indication: CROHN'S DISEASE

REACTIONS (1)
  - FOETAL DISORDER [None]
